FAERS Safety Report 4693681-9 (Version None)
Quarter: 2005Q2

REPORT INFORMATION
  Report Type: 
  Country: None (occurrence: None)
  Receive Date: 20050617
  Receipt Date: 20050607
  Transmission Date: 20051028
  Serious: Yes (Hospitalization)
  Sender: FDA-Public Use
  Company Number: 2005UW08827

PATIENT
  Age: 22553 Day
  Sex: Male

DRUGS (1)
  1. IRESSA [Suspect]
     Indication: NON-SMALL CELL LUNG CANCER
     Route: 048
     Dates: start: 20050513, end: 20050524

REACTIONS (4)
  - DIARRHOEA [None]
  - DYSPHAGIA [None]
  - NAUSEA [None]
  - VOMITING [None]
